FAERS Safety Report 24529321 (Version 1)
Quarter: 2024Q4

REPORT INFORMATION
  Report Type: Spontaneous
  Country: US (occurrence: None)
  Receive Date: 20241021
  Receipt Date: 20241021
  Transmission Date: 20250115
  Serious: Yes (Hospitalization)
  Sender: Public
  Company Number: None

PATIENT
  Sex: Female

DRUGS (11)
  1. TABRECTA [Suspect]
     Active Substance: CAPMATINIB
     Indication: Malignant respiratory tract neoplasm
     Dosage: FREQ: TAKE 2 TABLETS BY MOUTH EVERY MORNING AND THEN TAKE 1 TABLET BY MOUTH EVERY EVENING?
     Route: 048
     Dates: start: 20230131
  2. ACETAMINOPHN TAB 500MG [Concomitant]
  3. ASCORBIC ACD POW [Concomitant]
  4. BIOTIN TAB 10MG [Concomitant]
  5. CALCIUM TAB 500MG [Concomitant]
  6. CALCIUM 600 TAB +D [Concomitant]
  7. CENTRUM TAB SILVER [Concomitant]
  8. ELIQUIS TAB 2.SMG [Concomitant]
  9. FISH OIL CAP 1200MG [Concomitant]
  10. FUROSEMIDE [Concomitant]
     Active Substance: FUROSEMIDE
  11. IBUPROFEN [Concomitant]
     Active Substance: IBUPROFEN

REACTIONS (3)
  - Pain [None]
  - Musculoskeletal pain [None]
  - Pain in extremity [None]
